FAERS Safety Report 15741134 (Version 1)
Quarter: 2018Q4

REPORT INFORMATION
  Report Type: Spontaneous
  Country: US (occurrence: US)
  Receive Date: 20181219
  Receipt Date: 20181219
  Transmission Date: 20190205
  Serious: Yes (Death, Hospitalization)
  Sender: FDA-Public Use
  Company Number: None

PATIENT
  Age: 76 Year
  Sex: Female

DRUGS (16)
  1. NORVASC 5 [Concomitant]
  2. LASIX 20 [Concomitant]
  3. NITROSTAT [Concomitant]
     Active Substance: NITROGLYCERIN
  4. AFINITOR [Suspect]
     Active Substance: EVEROLIMUS
     Indication: BREAST CANCER
     Route: 048
  5. VITAMIN C [Concomitant]
     Active Substance: ASCORBIC ACID
  6. ATIVAN 0.5 [Concomitant]
  7. MULTI VITAMIN [Concomitant]
     Active Substance: VITAMINS
  8. LISINOPRIL 20 [Concomitant]
  9. PANTOPRAZOLE [Concomitant]
     Active Substance: PANTOPRAZOLE
  10. ZYRTEC [Concomitant]
     Active Substance: CETIRIZINE HYDROCHLORIDE
  11. CALCIUM [Concomitant]
     Active Substance: CALCIUM
  12. COREG [Concomitant]
     Active Substance: CARVEDILOL
  13. FERROUS SULFATE. [Concomitant]
     Active Substance: FERROUS SULFATE
  14. FISH OIL 1000 [Concomitant]
  15. METFORMIN 500 [Concomitant]
     Active Substance: METFORMIN HYDROCHLORIDE
  16. NYSTATIN POWDER [Concomitant]
     Active Substance: NYSTATIN

REACTIONS (2)
  - Peripheral swelling [None]
  - Pain [None]
